FAERS Safety Report 19095480 (Version 1)
Quarter: 2021Q2

REPORT INFORMATION
  Report Type: Report from Study
  Country: None (occurrence: CA)
  Receive Date: 20210406
  Receipt Date: 20210406
  Transmission Date: 20210717
  Serious: Yes (Other)
  Sender: FDA-Public Use
  Company Number: CA-ABBVIE-21K-028-3844495-00

PATIENT
  Sex: Female

DRUGS (2)
  1. AMLODIPINE [Concomitant]
     Active Substance: AMLODIPINE BESYLATE
     Indication: HYPERTENSION
  2. SKYRIZI [Suspect]
     Active Substance: RISANKIZUMAB-RZAA
     Indication: PSORIASIS
     Route: 058
     Dates: start: 20201219

REACTIONS (6)
  - Headache [Unknown]
  - Hypertensive urgency [Unknown]
  - Nocturia [Recovered/Resolved]
  - Adverse drug reaction [Unknown]
  - Sensory disturbance [Unknown]
  - Fatigue [Not Recovered/Not Resolved]
